FAERS Safety Report 23312260 (Version 1)
Quarter: 2023Q4

REPORT INFORMATION
  Report Type: Spontaneous
  Country: US (occurrence: US)
  Receive Date: 20231219
  Receipt Date: 20231219
  Transmission Date: 20240109
  Serious: No
  Sender: FDA-Public Use
  Company Number: US-OPELLA-2023OHG016536

PATIENT

DRUGS (1)
  1. ICY HOT [Suspect]
     Active Substance: MENTHOL\METHYL SALICYLATE
     Indication: Product used for unknown indication

REACTIONS (4)
  - Burning sensation [Unknown]
  - Erythema [Unknown]
  - Skin exfoliation [Unknown]
  - Pruritus [Unknown]
